FAERS Safety Report 8237011-4 (Version None)
Quarter: 2012Q1

REPORT INFORMATION
  Report Type: 
  Country: None (occurrence: None)
  Receive Date: 20120327
  Receipt Date: 20120321
  Transmission Date: 20120608
  Serious: Yes (Other)
  Sender: FDA-Public Use
  Company Number: PHHY2012FR024171

PATIENT
  Age: 73 Year
  Sex: Female

DRUGS (2)
  1. FASLODEX [Concomitant]
  2. ZOMETA [Suspect]
     Indication: METASTASES TO BONE
     Dosage: EVERY 4 WEEKS (DOSE UNKNOWN)
     Dates: start: 20120301

REACTIONS (5)
  - INJECTION SITE PARAESTHESIA [None]
  - EXTRAVASATION [None]
  - PYREXIA [None]
  - CHILLS [None]
  - CHEST PAIN [None]
